FAERS Safety Report 24107711 (Version 1)
Quarter: 2024Q3

REPORT INFORMATION
  Report Type: Spontaneous
  Country: TR (occurrence: TR)
  Receive Date: 20240718
  Receipt Date: 20240718
  Transmission Date: 20241017
  Serious: Yes (Death)
  Sender: ROCHE
  Company Number: TR-ROCHE-10000024398

PATIENT
  Sex: Female

DRUGS (1)
  1. RITUXIMAB [Suspect]
     Active Substance: RITUXIMAB
     Indication: Immunosuppressant drug therapy
     Dosage: FOR FOUR WEEKS
     Route: 065

REACTIONS (3)
  - Bacterial sepsis [Fatal]
  - Septic shock [Fatal]
  - Acute respiratory distress syndrome [Fatal]
